FAERS Safety Report 6111714-X (Version None)
Quarter: 2009Q1

REPORT INFORMATION
  Report Type: 
  Country: None (occurrence: None)
  Receive Date: 20090311
  Receipt Date: 20090226
  Transmission Date: 20090719
  Serious: Yes (Other)
  Sender: FDA-Public Use
  Company Number: PHHY2009BR07321

PATIENT
  Sex: Male

DRUGS (1)
  1. DIOVAN AMLO [Suspect]
     Indication: HYPERTENSION
     Dosage: 80/5 MG
     Route: 048
     Dates: start: 20050101

REACTIONS (7)
  - FATIGUE [None]
  - FEELING ABNORMAL [None]
  - JOINT SPRAIN [None]
  - MUSCLE FIBROSIS [None]
  - PAIN IN EXTREMITY [None]
  - TENDON RUPTURE [None]
  - ULTRASOUND SCAN ABNORMAL [None]
